FAERS Safety Report 8556885-0 (Version None)
Quarter: 2012Q3

REPORT INFORMATION
  Report Type: 
  Country: None (occurrence: None)
  Receive Date: 20120801
  Receipt Date: 20120727
  Transmission Date: 20120928
  Serious: Yes (Other)
  Sender: FDA-Public Use
  Company Number: US-PFIZER INC-2012055216

PATIENT
  Sex: Male

DRUGS (2)
  1. CHANTIX [Suspect]
     Indication: SMOKING CESSATION THERAPY
     Dosage: UNK
     Dates: start: 20081013, end: 20081201
  2. CHANTIX [Suspect]
     Dosage: UNK
     Dates: start: 20090213, end: 20090301

REACTIONS (7)
  - AGITATION [None]
  - ANGER [None]
  - INSOMNIA [None]
  - SUICIDAL BEHAVIOUR [None]
  - DEPRESSION [None]
  - AGGRESSION [None]
  - ANXIETY [None]
